FAERS Safety Report 14924219 (Version 1)
Quarter: 2018Q2

REPORT INFORMATION
  Report Type: Spontaneous
  Country: NO (occurrence: NO)
  Receive Date: 20180522
  Receipt Date: 20180522
  Transmission Date: 20180711
  Serious: Yes (Disabling, Other)
  Sender: FDA-Public Use
  Company Number: NO-PFIZER INC-2018205813

PATIENT
  Age: 60 Year
  Sex: Male

DRUGS (3)
  1. METHOTREXATE SODIUM. [Suspect]
     Active Substance: METHOTREXATE SODIUM
     Indication: PHOTODERMATOSIS
     Dosage: 15 MG, WEEKLY
     Route: 048
     Dates: start: 20161018, end: 20180129
  2. ULORIC [Concomitant]
     Active Substance: FEBUXOSTAT
     Indication: GOUT
     Dosage: 80 MG, 1X/DAY
     Route: 048
  3. FOLSYRE NAF [Concomitant]
     Active Substance: FOLIC ACID
     Dosage: 1 MG, 5 DAYS A WEEK
     Route: 048

REACTIONS (2)
  - Keratoconus [Not Recovered/Not Resolved]
  - Product use in unapproved indication [Recovered/Resolved]

NARRATIVE: CASE EVENT DATE: 2017
